FAERS Safety Report 15533454 (Version 2)
Quarter: 2018Q4

REPORT INFORMATION
  Report Type: Spontaneous
  Country: GB (occurrence: GB)
  Receive Date: 20181019
  Receipt Date: 20181130
  Transmission Date: 20190205
  Serious: Yes (Hospitalization)
  Sender: FDA-Public Use
  Company Number: GB-MYLANLABS-2018M1078425

PATIENT
  Sex: Male

DRUGS (8)
  1. PRIADEL [Concomitant]
     Active Substance: LITHIUM
     Indication: PRODUCT USED FOR UNKNOWN INDICATION
     Dosage: 600 MILLIGRAM, PM
     Route: 048
  2. CLOZARIL [Suspect]
     Active Substance: CLOZAPINE
     Indication: SCHIZOPHRENIA
     Dosage: 300 MILLIGRAM, QD
     Route: 048
     Dates: start: 20010417
  3. VENLAFAXINE [Concomitant]
     Active Substance: VENLAFAXINE HYDROCHLORIDE
     Indication: PRODUCT USED FOR UNKNOWN INDICATION
     Dosage: 225 MILLIGRAM, QD
     Route: 048
  4. WARFARIN [Concomitant]
     Active Substance: WARFARIN
     Indication: PRODUCT USED FOR UNKNOWN INDICATION
     Dosage: UNK
  5. FLUPENTHIXOL [Concomitant]
     Active Substance: FLUPENTIXOL
     Indication: PRODUCT USED FOR UNKNOWN INDICATION
     Dosage: 9 MILLIGRAM, BID
     Route: 048
  6. PREGABALIN. [Concomitant]
     Active Substance: PREGABALIN
     Indication: PRODUCT USED FOR UNKNOWN INDICATION
     Dosage: 75 MILLIGRAM, BID
     Route: 048
  7. METFORMIN [Concomitant]
     Active Substance: METFORMIN HYDROCHLORIDE
     Indication: PRODUCT USED FOR UNKNOWN INDICATION
     Dosage: UNK
  8. KWELLS [Concomitant]
     Active Substance: SCOPOLAMINE HYDROBROMIDE
     Indication: PRODUCT USED FOR UNKNOWN INDICATION
     Dosage: 300 MICROGRAM, TID
     Route: 048

REACTIONS (1)
  - Fall [Recovered/Resolved]

NARRATIVE: CASE EVENT DATE: 201809
